FAERS Safety Report 21657751 (Version 1)
Quarter: 2022Q4

REPORT INFORMATION
  Report Type: Spontaneous
  Country: DE (occurrence: DE)
  Receive Date: 20221129
  Receipt Date: 20221129
  Transmission Date: 20230113
  Serious: Yes (Hospitalization)
  Sender: FDA-Public Use
  Company Number: DE-ADRED-07904-01

PATIENT
  Age: 82 Year
  Sex: Male
  Weight: 70 kg

DRUGS (5)
  1. TORSEMIDE [Suspect]
     Active Substance: TORSEMIDE
     Indication: Product used for unknown indication
     Dosage: 5 MILLIGRAM, QD  1-0-0-0, TABLET
     Route: 048
  2. RAMIPRIL [Suspect]
     Active Substance: RAMIPRIL
     Indication: Product used for unknown indication
     Dosage: 2.5 MILLIGRAM, QD 1-0-0-0, TABLET
     Route: 048
  3. NATUCOR [Concomitant]
     Dosage: 0-1-0-0, TABLET
     Route: 048
  4. DALTEPARIN [Concomitant]
     Active Substance: DALTEPARIN
     Dosage: 5000 IU, 0-0-1-0, PRE-FILLED SYRINGES
     Route: 058
  5. METAMIZOL [Concomitant]
     Active Substance: METAMIZOLE SODIUM
     Dosage: 500 MILLIGRAM PER MILLILITRE 20-20-20-20, DROPS
     Route: 048

REACTIONS (4)
  - Flank pain [Unknown]
  - Product monitoring error [Unknown]
  - General physical health deterioration [Unknown]
  - Asthenia [Unknown]
